FAERS Safety Report 8973598 (Version 1)
Quarter: 2012Q4

REPORT INFORMATION
  Report Type: 
  Country: CN (occurrence: CN)
  Receive Date: 20121218
  Receipt Date: 20121218
  Transmission Date: 20130627
  Serious: Yes (Hospitalization)
  Sender: FDA-Public Use
  Company Number: PHHY2012CN109928

PATIENT
  Age: 41 Year
  Sex: Male
  Weight: 60 kg

DRUGS (4)
  1. DIOVAN [Suspect]
     Indication: HYPERTENSION
     Dosage: 80 mg, QD
     Route: 048
     Dates: start: 20110608, end: 20110609
  2. DIOVAN [Suspect]
     Indication: PROTEINURIA
  3. BA LING [Suspect]
     Indication: HYPERTENSION
     Dosage: 4 DF, TID
     Route: 048
     Dates: start: 20110608
  4. BA LING [Suspect]
     Indication: PROTEINURIA

REACTIONS (5)
  - Roseola [Recovering/Resolving]
  - Pruritus [Recovering/Resolving]
  - Swelling face [Recovering/Resolving]
  - Lip swelling [Recovering/Resolving]
  - Eye swelling [Recovering/Resolving]
